FAERS Safety Report 23105782 (Version 3)
Quarter: 2024Q1

REPORT INFORMATION
  Report Type: Report from Study
  Country: US (occurrence: US)
  Receive Date: 20231025
  Receipt Date: 20240219
  Transmission Date: 20240409
  Serious: Yes (Hospitalization)
  Sender: FDA-Public Use
  Company Number: US-ABBVIE-5464229

PATIENT
  Age: 82 Year
  Sex: Female
  Weight: 87 kg

DRUGS (14)
  1. RINVOQ [Suspect]
     Active Substance: UPADACITINIB
     Indication: Dermatitis atopic
     Dosage: FORM STRENGTH: 15 MILLIGRAM?15 MG BY MOUTH EVERY DAY
     Route: 048
     Dates: start: 202307
  2. TOPROL XL [Concomitant]
     Active Substance: METOPROLOL SUCCINATE
     Indication: Hypertension
     Dosage: FIRST ADMIN DATE WAS 13 JULY 2022?(TOPROL XL)?TAKE 1 TABLET (25 MG TOTAL) BY MOUTH EVERY DAY?METO...
     Route: 048
     Dates: end: 20231113
  3. XARELTO [Concomitant]
     Active Substance: RIVAROXABAN
     Indication: Product used for unknown indication
     Dosage: RIVAROXABAN?TAKE 1 TABLET (20 MG TOTAL) BY MOUTH WITH DINNER
     Route: 048
     Dates: start: 20230825, end: 20231221
  4. LASIX [Concomitant]
     Active Substance: FUROSEMIDE
     Indication: Product used for unknown indication
     Dosage: TAKE 1 TABLET (40 MG TOTAL) BY MOUTH EVERY DAY AS NEEDED (SWELLING OF LEGS)?FUROSEMIDE
     Route: 048
     Dates: start: 20230823
  5. NEURONTIN [Concomitant]
     Active Substance: GABAPENTIN
     Indication: Product used for unknown indication
     Dosage: TIME INTERVAL: 0.33333333 DAYS: NEURONTIN ?TAKE 1 CAPSULE BY MOUTH THREE TIMES DAILY?GABAPENTIN
     Dates: start: 20230821, end: 20240206
  6. K dur [Concomitant]
     Indication: Product used for unknown indication
     Dosage: 10 MEQ CR ?TAKE 1 TABLET (10 MEQ TOTAL) BY MOUTH EVERY DAY?POTASSIUM CHLORIDE
     Route: 048
     Dates: start: 20231002
  7. LIPITOR [Concomitant]
     Active Substance: ATORVASTATIN CALCIUM
     Indication: Product used for unknown indication
     Dosage: TAKE 1 TABLET (10 MG TOTAL) BY MOUTH EVERY DAY??ATORVASTATIN
     Route: 048
     Dates: start: 20230707
  8. IMITREX [Concomitant]
     Active Substance: SUMATRIPTAN SUCCINATE
     Indication: Product used for unknown indication
     Dosage: TAKE TABLET (50 MG TOTAL) BY MOUTH AS NEEDED ONLY AS DIRECTED BY PHYSICIAN FOR MIGRAINE HEADACHE ...
     Route: 048
     Dates: start: 20230901
  9. ECOTRIN [Concomitant]
     Active Substance: ASPIRIN
     Indication: Product used for unknown indication
     Dosage: TAKE 1 TAB (81 MG TOTAL)BY MOUTH EVERY DAY?FIRST ADMIN DATE WAS 10TH JULY 2020?ASPIRIN EC
     Route: 048
  10. ASTELIN [Concomitant]
     Active Substance: AZELASTINE HYDROCHLORIDE
     Indication: Product used for unknown indication
     Dosage: AZELASTINE?137 MCG (0.1 %) NASAL SPRAY?FIRST ADMIN DATE WAS 19TH APRIL 2021?APPLY OR INSTILL 2 SP...
     Route: 045
  11. BUSPAR [Concomitant]
     Active Substance: BUSPIRONE HYDROCHLORIDE
     Indication: Product used for unknown indication
     Dosage: BUSPIRONE ?TAKE 1 TABLET (10 MG TOTAL) BY MOUTH TWO TIMES DAILY?FIRST ADMIN DATE WAS 20 SEPT 2022
     Route: 048
  12. KEFLEX [Concomitant]
     Active Substance: CEPHALEXIN
     Indication: Product used for unknown indication
     Dosage: CEPHALEXIN 500 MG?TAKE 250 MG BY MOUTH TWO TIMES DAILY?FIRST ADMIN DATE WAS 18 APRIL 2023
     Route: 048
  13. VITAMIN D3 [Concomitant]
     Active Substance: CHOLECALCIFEROL
     Indication: Product used for unknown indication
     Dosage: 125MCG (5000 UNIT)?TAKE 1 CAP (5,000 UNITS TOTAL) BY MOUTH EVERY DAY?FIRST ADMIN DATE 8 OCT 2020?...
     Route: 048
  14. FLONASE [Concomitant]
     Active Substance: FLUTICASONE PROPIONATE
     Indication: Product used for unknown indication
     Dosage: FLUTICASONE PROPIONATE?APPLY OR INSTILL TWO SPRAYS INTO BOTH NOSTRILS EVERY DAY?50 MCG ACTUATION ...
     Route: 045

REACTIONS (15)
  - Orthostatic hypotension [Unknown]
  - Pruritus [Recovered/Resolved]
  - Off label use [Not Recovered/Not Resolved]
  - Skin haemorrhage [Recovered/Resolved]
  - Ulcer [Recovered/Resolved]
  - Fatigue [Unknown]
  - Scratch [Recovered/Resolved]
  - Neuropathy peripheral [Unknown]
  - Asthenia [Unknown]
  - Gait disturbance [Unknown]
  - Dyspnoea [Unknown]
  - Left ventricular failure [Unknown]
  - Major depression [Unknown]
  - Aortic arteriosclerosis [Unknown]
  - Chronic kidney disease [Unknown]

NARRATIVE: CASE EVENT DATE: 20230701
